FAERS Safety Report 16357462 (Version 1)
Quarter: 2019Q2

REPORT INFORMATION
  Report Type: Report from Study
  Country: US (occurrence: US)
  Receive Date: 20190527
  Receipt Date: 20190527
  Transmission Date: 20190711
  Serious: No
  Sender: FDA-Public Use
  Company Number: US-IPSEN BIOPHARMACEUTICALS, INC.-2019-07360

PATIENT
  Age: 31 Year
  Sex: Female

DRUGS (1)
  1. DYSPORT [Suspect]
     Active Substance: ABOBOTULINUMTOXINA
     Indication: TORTICOLLIS
     Dosage: NOT REPORTED
     Route: 030
     Dates: start: 20180529, end: 20181128

REACTIONS (2)
  - Muscular weakness [Unknown]
  - Therapy cessation [Unknown]

NARRATIVE: CASE EVENT DATE: 201809
